FAERS Safety Report 4597098-7 (Version None)
Quarter: 2005Q1

REPORT INFORMATION
  Report Type: 
  Country: None (occurrence: None)
  Receive Date: 20050225
  Receipt Date: 20050210
  Transmission Date: 20050727
  Serious: Yes (Hospitalization)
  Sender: FDA-Public Use
  Company Number: SAGL-ZLB/05/21/FRA

PATIENT
  Age: 2 Year
  Sex: Male

DRUGS (1)
  1. SANDOGLOBULIN [Suspect]
     Indication: PROPHYLAXIS
     Dosage: I.V.
     Route: 042

REACTIONS (5)
  - BLOOD PRESSURE INCREASED [None]
  - INFUSION RELATED REACTION [None]
  - PYREXIA [None]
  - TACHYCARDIA [None]
  - TACHYPNOEA [None]
